FAERS Safety Report 6626600-6 (Version None)
Quarter: 2010Q1

REPORT INFORMATION
  Report Type: 
  Country: None (occurrence: None)
  Receive Date: 20100310
  Receipt Date: 20100303
  Transmission Date: 20100710
  Serious: Yes (Life-Threatening)
  Sender: FDA-Public Use
  Company Number: CA-MERCK-1003CAN00005

PATIENT
  Age: 65 Year
  Sex: Male
  Weight: 80 kg

DRUGS (7)
  1. JANUVIA [Suspect]
     Indication: TYPE 2 DIABETES MELLITUS
     Route: 048
     Dates: start: 20100104, end: 20100211
  2. CITALOPRAM [Concomitant]
     Route: 065
     Dates: start: 20091101
  3. LYRICA [Concomitant]
     Route: 065
     Dates: start: 20051101
  4. CRESTOR [Concomitant]
     Route: 065
     Dates: start: 20050901
  5. HUMALOG [Concomitant]
     Route: 065
     Dates: start: 20040101
  6. LANTUS [Concomitant]
     Route: 065
     Dates: start: 20050101
  7. ACCUPRIL [Concomitant]
     Route: 065
     Dates: start: 20080501

REACTIONS (4)
  - MEMORY IMPAIRMENT [None]
  - ROAD TRAFFIC ACCIDENT [None]
  - SLEEP DISORDER [None]
  - VISUAL IMPAIRMENT [None]
